FAERS Safety Report 9995389 (Version 1)
Quarter: 2014Q1

REPORT INFORMATION
  Report Type: Spontaneous
  Country: US (occurrence: None)
  Receive Date: 20140214
  Receipt Date: 20140214
  Transmission Date: 20141002
  Serious: Yes (Other)
  Sender: FDA-Public Use
  Company Number: US-013633

PATIENT
  Age: 41 Year
  Sex: Female

DRUGS (5)
  1. PREPOPIK [Suspect]
     Indication: BOWEL PREPARATION
     Dosage: AT 4 PM TOOK THE FIRST DOSE AND AT 10PM TOOK THE SECOND DOSE
     Route: 048
     Dates: start: 20131110, end: 20131110
  2. PRILOSEC [Concomitant]
  3. COZAAR [Concomitant]
  4. JUNEL [Concomitant]
  5. SIMPONI [Concomitant]

REACTIONS (1)
  - Drug ineffective [None]
